FAERS Safety Report 7422701-3 (Version None)
Quarter: 2011Q2

REPORT INFORMATION
  Report Type: 
  Country: None (occurrence: None)
  Receive Date: 20110411
  Receipt Date: 20110330
  Transmission Date: 20111010
  Serious: Yes (Death, Hospitalization)
  Sender: FDA-Public Use
  Company Number: 2008-02137

PATIENT
  Age: 69 Year
  Sex: Female
  Weight: 35 kg

DRUGS (12)
  1. RABEPRAZOLE SODIUM [Concomitant]
  2. MCOSTA (REBAMIPIDE) [Concomitant]
  3. DEPAKENE [Concomitant]
  4. MARZULENE S (LEVOGLUTAMIDE, SODIUM GUALENATE) [Concomitant]
  5. ALENDRONATE SODIUM [Concomitant]
  6. AMITRIPTYLINE HCL [Concomitant]
  7. MIYA-BM /JPN/ (CLOSTRIDIUM BUTYRICUM) [Concomitant]
  8. DEXAMETHASONE [Suspect]
     Indication: MULTIPLE MYELOMA
     Dosage: 10 MG, ORAL
     Route: 048
     Dates: start: 20080530, end: 20080609
  9. VELCADE [Suspect]
     Indication: MULTIPLE MYELOMA
     Dosage: 1.5 MG, INTRAVENOUS; 1.2 MG, INTRAVENOUS
     Route: 042
     Dates: start: 20080530, end: 20080602
  10. VELCADE [Suspect]
     Indication: MULTIPLE MYELOMA
     Dosage: 1.5 MG, INTRAVENOUS; 1.2 MG, INTRAVENOUS
     Route: 042
     Dates: start: 20080606, end: 20080606
  11. MAGNESIUM OXIDE (MAGNESIUM OXIDE) [Concomitant]
  12. CLARITHROMYCIN [Concomitant]

REACTIONS (10)
  - HYPOCALCAEMIA [None]
  - CARDIO-RESPIRATORY ARREST [None]
  - HYPONATRAEMIA [None]
  - DEPRESSED LEVEL OF CONSCIOUSNESS [None]
  - PLATELET COUNT DECREASED [None]
  - GASTROINTESTINAL INFECTION [None]
  - ILEUS PARALYTIC [None]
  - HYPOALBUMINAEMIA [None]
  - CONSTIPATION [None]
  - SEPTIC SHOCK [None]
